FAERS Safety Report 8231991-9 (Version None)
Quarter: 2012Q1

REPORT INFORMATION
  Report Type: 
  Country: None (occurrence: None)
  Receive Date: 20120323
  Receipt Date: 20120319
  Transmission Date: 20120608
  Serious: Yes (Hospitalization)
  Sender: FDA-Public Use
  Company Number: US-TEVA-328719USA

PATIENT
  Age: 20 Year
  Sex: Female

DRUGS (1)
  1. AMPHETAMINE AND DEXTROAMPHETAMINE SALTS [Suspect]

REACTIONS (3)
  - OXYGEN SATURATION DECREASED [None]
  - BLOOD HEAVY METAL INCREASED [None]
  - OEDEMA PERIPHERAL [None]
